FAERS Safety Report 13675417 (Version 1)
Quarter: 2017Q2

REPORT INFORMATION
  Report Type: Spontaneous
  Country: US (occurrence: US)
  Receive Date: 20170621
  Receipt Date: 20170621
  Transmission Date: 20170830
  Serious: Yes (Hospitalization)
  Sender: FDA-Public Use
  Company Number: US-INTERPRAG-PM-OCA2017-00561

PATIENT

DRUGS (8)
  1. CALCIUM [Concomitant]
     Active Substance: CALCIUM
  2. TACROLIMUS. [Concomitant]
     Active Substance: TACROLIMUS
  3. SODIUM BICARBONATE. [Concomitant]
     Active Substance: SODIUM BICARBONATE
  4. PREDNISONE. [Concomitant]
     Active Substance: PREDNISONE
  5. OCALIVA [Suspect]
     Active Substance: OBETICHOLIC ACID
     Indication: BILIARY CIRRHOSIS PRIMARY
     Dosage: 10 MG, QD
     Route: 048
     Dates: end: 20170601
  6. OCALIVA [Suspect]
     Active Substance: OBETICHOLIC ACID
     Dosage: 5 MG, QD
     Route: 048
     Dates: start: 20170608
  7. MYFORTIC [Concomitant]
     Active Substance: MYCOPHENOLATE SODIUM
  8. LACTOSE [Concomitant]
     Active Substance: LACTOSE

REACTIONS (3)
  - Pruritus [Unknown]
  - Renal failure [Unknown]
  - Rash generalised [Unknown]

NARRATIVE: CASE EVENT DATE: 20170517
